FAERS Safety Report 11891691 (Version 2)
Quarter: 2016Q2

REPORT INFORMATION
  Report Type: Spontaneous
  Country: US (occurrence: US)
  Receive Date: 20160106
  Receipt Date: 20160614
  Transmission Date: 20160815
  Serious: Yes (Life-Threatening, Hospitalization)
  Sender: FDA-Public Use
  Company Number: US-BAYER-2016-001854

PATIENT
  Age: 27 Year
  Sex: Female

DRUGS (5)
  1. MIRENA [Suspect]
     Active Substance: LEVONORGESTREL
     Indication: CONTRACEPTION
     Dosage: 20 MCG/24HR, CONT
     Route: 015
     Dates: start: 20130221, end: 20140908
  2. ANAPLEX [Concomitant]
     Active Substance: CHLORPHENIRAMINE MALEATE\PSEUDOEPHEDRINE HYDROCHLORIDE
     Dosage: 550 MG, UNK
  3. PHENERGAN [Concomitant]
     Active Substance: PROMETHAZINE HYDROCHLORIDE
     Dosage: 12.5 MG, UNK
  4. MIRENA [Suspect]
     Active Substance: LEVONORGESTREL
     Indication: CONTRACEPTION
     Dosage: 20 MCG/24HR, CONT
     Route: 015
     Dates: start: 20080411, end: 20130221
  5. SUFENTANIL NARCO-MED [Concomitant]
     Dosage: 5/325 MG,

REACTIONS (4)
  - Device issue [None]
  - Abdominal pain lower [None]
  - Device difficult to use [None]
  - Uterine perforation [None]

NARRATIVE: CASE EVENT DATE: 20130220
